FAERS Safety Report 5891682-6 (Version None)
Quarter: 2008Q3

REPORT INFORMATION
  Report Type: 
  Country: None (occurrence: None)
  Receive Date: 20080922
  Receipt Date: 20080908
  Transmission Date: 20090109
  Serious: Yes (Other)
  Sender: FDA-Public Use
  Company Number: IT-ELI_LILLY_AND_COMPANY-IT200809001784

PATIENT
  Age: 66 Year
  Sex: Female

DRUGS (1)
  1. ZYPREXA [Suspect]
     Dosage: UNK, UNKNOWN
     Route: 065
     Dates: start: 20060101

REACTIONS (3)
  - CHOREA [None]
  - DYSKINESIA [None]
  - TARDIVE DYSKINESIA [None]
